FAERS Safety Report 19834859 (Version 1)
Quarter: 2021Q3

REPORT INFORMATION
  Report Type: Report from Study
  Country: None (occurrence: US)
  Receive Date: 20210915
  Receipt Date: 20210915
  Transmission Date: 20211014
  Serious: Yes (Hospitalization)
  Sender: FDA-Public Use
  Company Number: US-ABBVIE-21K-163-4067146-00

PATIENT
  Age: 82 Year
  Sex: Male

DRUGS (2)
  1. ACYCLOVIR. [Concomitant]
     Active Substance: ACYCLOVIR
     Indication: PRODUCT USED FOR UNKNOWN INDICATION
  2. VENCLEXTA [Suspect]
     Active Substance: VENETOCLAX
     Indication: PRODUCT USED FOR UNKNOWN INDICATION
     Dosage: AS PER PACKAGE INSTRUCTIONS
     Route: 048
     Dates: end: 20210824

REACTIONS (4)
  - Adverse drug reaction [Unknown]
  - Pharyngitis [Recovered/Resolved]
  - Febrile neutropenia [Recovered/Resolved]
  - Cerebral atrophy [Recovered/Resolved]

NARRATIVE: CASE EVENT DATE: 20210824
